FAERS Safety Report 6006147-0 (Version None)
Quarter: 2008Q4

REPORT INFORMATION
  Report Type: 
  Country: None (occurrence: None)
  Receive Date: 20081217
  Receipt Date: 20080812
  Transmission Date: 20090506
  Serious: No
  Sender: FDA-Public Use
  Company Number: US-BAUSCH-2008BL003573

PATIENT
  Age: 52 Year
  Sex: Female

DRUGS (3)
  1. ZYLET [Suspect]
     Indication: EYE INFECTION
     Route: 047
     Dates: start: 20080806, end: 20080812
  2. BETASERON [Concomitant]
     Indication: MULTIPLE SCLEROSIS
     Route: 030
  3. MULTI-VITAMINS [Concomitant]

REACTIONS (3)
  - EYE PAIN [None]
  - KERATOCONJUNCTIVITIS SICCA [None]
  - VISUAL ACUITY REDUCED [None]
